FAERS Safety Report 9355443 (Version 4)
Quarter: 2014Q1

REPORT INFORMATION
  Report Type: Report from Study
  Country: US (occurrence: US)
  Receive Date: 20130619
  Receipt Date: 20140210
  Transmission Date: 20141002
  Serious: Yes (Death, Hospitalization)
  Sender: FDA-Public Use
  Company Number: US-BAYER-2013-072622

PATIENT
  Age: 76 Year
  Sex: Male
  Weight: 79.91 kg

DRUGS (7)
  1. ALPHARADIN [Suspect]
     Indication: PROSTATE CANCER METASTATIC
     Dosage: DAILY DOSE 6.38 ML
     Route: 042
     Dates: start: 20130326, end: 20130326
  2. ALPHARADIN [Suspect]
     Indication: PROSTATE CANCER METASTATIC
     Dosage: DAILY DOSE 5.2 ML
     Route: 042
     Dates: start: 20130423, end: 20130423
  3. ALPHARADIN [Suspect]
     Indication: PROSTATE CANCER METASTATIC
     Dosage: DAILY DOSE 5.2 ML
     Route: 042
     Dates: start: 20130521, end: 20130521
  4. ALPHARADIN [Suspect]
     Indication: PROSTATE CANCER METASTATIC
     Dosage: DAILY DOSE 6.54 ML
     Route: 042
     Dates: start: 20130613, end: 20130613
  5. PLAVIX [Concomitant]
     Indication: CEREBROVASCULAR ACCIDENT
     Dosage: 10 MG, QD
     Route: 048
     Dates: start: 2009
  6. HYDROCODONE W/APAP [Concomitant]
     Indication: PAIN
     Dosage: UNK UNK, PRN
     Route: 048
     Dates: start: 2013
  7. ZOMETA [Concomitant]
     Indication: PROSTATE CANCER METASTATIC
     Dosage: 4 MG/5ML Q4WKS
     Route: 042
     Dates: start: 2008

REACTIONS (3)
  - Malignant pleural effusion [Fatal]
  - Fatigue [None]
  - Anaemia [None]
